FAERS Safety Report 16379743 (Version 1)
Quarter: 2019Q2

REPORT INFORMATION
  Report Type: Spontaneous
  Country: US (occurrence: US)
  Receive Date: 20190531
  Receipt Date: 20190531
  Transmission Date: 20190711
  Serious: Yes (Death, Hospitalization, Other)
  Sender: FDA-Public Use
  Company Number: US-ALEXION-A201908310

PATIENT
  Age: 31 Year
  Sex: Female

DRUGS (1)
  1. SOLIRIS [Suspect]
     Active Substance: ECULIZUMAB
     Indication: ATYPICAL HAEMOLYTIC URAEMIC SYNDROME
     Route: 065

REACTIONS (11)
  - Oesophagitis [Unknown]
  - Aplastic anaemia [Unknown]
  - Graft versus host disease [Unknown]
  - Leukopenia [Unknown]
  - Blood creatinine increased [Unknown]
  - Pancytopenia [Unknown]
  - Thrombocytopenia [Unknown]
  - Death [Fatal]
  - Rash [Unknown]
  - Anaemia [Unknown]
  - Systemic candida [Unknown]
